FAERS Safety Report 9212758 (Version 1)
Quarter: 2013Q2

REPORT INFORMATION
  Report Type: Other
  Country: US (occurrence: US)
  Receive Date: 20130405
  Receipt Date: 20130405
  Transmission Date: 20140414
  Serious: Yes (Other)
  Sender: FDA-Public Use
  Company Number: US-SHIRE-ALL1-2013-01980

PATIENT
  Age: 39 Year
  Sex: Male

DRUGS (2)
  1. ELAPRASE [Suspect]
     Indication: MUCOPOLYSACCHARIDOSIS II
     Dosage: 36 ML (6 VIALS), 1X/WEEK
     Route: 041
     Dates: start: 20130321
  2. ELAPRASE [Suspect]
     Dosage: 36 ML (6 VIALS), 1X/WEEK
     Route: 041
     Dates: end: 201212

REACTIONS (3)
  - Migraine [Recovered/Resolved]
  - Infusion related reaction [Recovered/Resolved]
  - Device component issue [Unknown]
